FAERS Safety Report 4722686-4 (Version None)
Quarter: 2005Q3

REPORT INFORMATION
  Report Type: 
  Country: None (occurrence: None)
  Receive Date: 20050719
  Receipt Date: 20040928
  Transmission Date: 20060218
  Serious: Yes (Hospitalization, Other)
  Sender: FDA-Public Use
  Company Number: 2004236424US

PATIENT
  Age: 72 Year
  Sex: Male

DRUGS (4)
  1. CELEBREX [Suspect]
     Indication: ARTHRITIS
     Dosage: 200 MG, BID
     Dates: start: 19980101, end: 19990805
  2. ASPIRIN [Concomitant]
  3. PRILOSEC [Concomitant]
  4. LIPITOR [Concomitant]

REACTIONS (1)
  - GASTROINTESTINAL HAEMORRHAGE [None]
